FAERS Safety Report 7669902-7 (Version None)
Quarter: 2011Q3

REPORT INFORMATION
  Report Type: 
  Country: None (occurrence: None)
  Receive Date: 20110808
  Receipt Date: 20110803
  Transmission Date: 20111222
  Serious: Yes (Hospitalization)
  Sender: FDA-Public Use
  Company Number: US-PFIZER INC-2011141326

PATIENT
  Sex: Female
  Weight: 59.41 kg

DRUGS (4)
  1. DIOVAN HCT [Concomitant]
     Indication: HYPERTENSION
     Dosage: 160/12.5, DAILY
     Route: 048
  2. METHYLPREDNISOLONE [Concomitant]
     Indication: BONE DISORDER
     Dosage: 4 MG, UNK
  3. ROBITUSSIN COUGH AND CHEST CONGESTION DM [Suspect]
     Indication: COUGH
     Dosage: 2 TEASPOONS DAILY
     Route: 048
     Dates: start: 20110624
  4. ROBITUSSIN COUGH AND CHEST CONGESTION DM [Suspect]
     Dosage: UNK

REACTIONS (5)
  - MALAISE [None]
  - DEHYDRATION [None]
  - VOMITING [None]
  - DIARRHOEA [None]
  - INSOMNIA [None]
